FAERS Safety Report 16722875 (Version 1)
Quarter: 2019Q3

REPORT INFORMATION
  Report Type: Spontaneous
  Country: NL (occurrence: NL)
  Receive Date: 20190821
  Receipt Date: 20190821
  Transmission Date: 20191005
  Serious: Yes (Other)
  Sender: FDA-Public Use
  Company Number: NL-AUROBINDO-AUR-APL-2019-052890

PATIENT

DRUGS (1)
  1. FLECAINIDE [Suspect]
     Active Substance: FLECAINIDE
     Indication: ACCESSORY CARDIAC PATHWAY
     Dosage: 100 MILLIGRAM, ONCE A DAY
     Route: 048

REACTIONS (4)
  - Humerus fracture [Recovered/Resolved]
  - Atrioventricular block complete [Recovered/Resolved]
  - Conduction disorder [Recovered/Resolved]
  - Sinus tachycardia [Recovered/Resolved]
